FAERS Safety Report 22313213 (Version 1)
Quarter: 2023Q2

REPORT INFORMATION
  Report Type: Spontaneous
  Country: CA (occurrence: CA)
  Receive Date: 20230512
  Receipt Date: 20230512
  Transmission Date: 20230721
  Serious: Yes (Death, Hospitalization, Other)
  Sender: FDA-Public Use
  Company Number: CA-ABBVIE-4763629

PATIENT
  Age: 74 Year
  Sex: Male

DRUGS (6)
  1. GENGRAF [Suspect]
     Active Substance: CYCLOSPORINE
     Indication: Pure white cell aplasia
     Dosage: 2 EVERY 1 DAY; NOT SPECIFIED (100 MG,1 IN 12 HR)
     Route: 048
  2. GENGRAF [Suspect]
     Active Substance: CYCLOSPORINE
     Indication: Pure white cell aplasia
     Dosage: 2 EVERY 1 DAY (50 MG,1 IN 12 HR)
     Route: 048
  3. DANAZOL [Suspect]
     Active Substance: DANAZOL
     Indication: Pure white cell aplasia
     Dosage: 2 EVERY 1 DAY (200 MG,1 IN 12 HR)
     Route: 048
  4. FILGRASTIM [Suspect]
     Active Substance: FILGRASTIM
     Indication: Febrile neutropenia
     Route: 058
  5. HUMAN IMMUNOGLOBULIN G [Suspect]
     Active Substance: HUMAN IMMUNOGLOBULIN G
     Indication: Febrile neutropenia
     Dosage: IMMUNOGLOBULIN (HUMAN) (1 GM)
     Route: 042
  6. DAPSONE [Suspect]
     Active Substance: DAPSONE
     Indication: Pure white cell aplasia
     Route: 048

REACTIONS (4)
  - Multiple organ dysfunction syndrome [Fatal]
  - Drug ineffective [Fatal]
  - Thrombocytopenia [Fatal]
  - Sepsis [Fatal]
